FAERS Safety Report 9821747 (Version 1)
Quarter: 2014Q1

REPORT INFORMATION
  Report Type: Spontaneous
  Country: US (occurrence: US)
  Receive Date: 20140116
  Receipt Date: 20140116
  Transmission Date: 20141002
  Serious: No
  Sender: FDA-Public Use
  Company Number: US-VERTEX PHARMACEUTICALS INC-2014-000129

PATIENT
  Sex: Male
  Weight: 88.44 kg

DRUGS (3)
  1. INCIVEK [Suspect]
     Indication: HEPATITIS C
     Dosage: 2 PILLS Q 7-9 HOURS
     Route: 048
     Dates: start: 20131230, end: 20140102
  2. COPEGUS [Suspect]
     Indication: HEPATITIS C
     Dosage: 3 PILLS AM 2 PILLS PM
     Route: 048
     Dates: start: 20131230, end: 20140102
  3. PEGASYS [Suspect]
     Indication: HEPATITIS C
     Dosage: 180 ?G, QW
     Route: 058
     Dates: start: 20131230, end: 20140102

REACTIONS (3)
  - Blister [Recovered/Resolved]
  - Skin ulcer [Recovered/Resolved]
  - Rash [Recovered/Resolved]
